FAERS Safety Report 5916382-5 (Version None)
Quarter: 2008Q4

REPORT INFORMATION
  Report Type: 
  Country: None (occurrence: None)
  Receive Date: 20081013
  Receipt Date: 20081001
  Transmission Date: 20090506
  Serious: Yes (Hospitalization)
  Sender: FDA-Public Use
  Company Number: GB-WYE-H06304108

PATIENT
  Age: 70 Year
  Sex: Female

DRUGS (16)
  1. AMIODARONE [Suspect]
     Indication: SUPRAVENTRICULAR TACHYCARDIA
     Dosage: UNSPECIFIED
     Route: 042
  2. ACETYLSALICYLIC ACID SRT [Concomitant]
     Indication: ISCHAEMIC HEART DISEASE PROPHYLAXIS
     Dosage: 75 MG (FREQUENCY UNSPECIFIED)
     Route: 048
  3. ATENOLOL [Concomitant]
     Indication: HYPERTENSION
     Route: 048
  4. CEFALEXIN [Concomitant]
     Indication: PROPHYLAXIS
     Route: 048
  5. CO-DYDRAMOL [Concomitant]
     Indication: PAIN
     Dosage: 2 UNIT EVERY 1 DAY
     Route: 048
  6. ENALAPRIL MALEATE [Concomitant]
     Indication: HYPERTENSION
     Route: 048
  7. ENOXAPARIN SODIUM [Concomitant]
     Indication: PROPHYLAXIS
     Route: 058
     Dates: start: 20080913, end: 20080916
  8. NITROGLYCERIN [Concomitant]
     Indication: ANGINA PECTORIS
     Dosage: 2 UNIT PRN
  9. METOCLOPRAMIDE [Concomitant]
     Indication: NAUSEA
     Dosage: 10 MG (FREQUENCY UNSPECIFIED)
     Route: 048
     Dates: start: 20080913
  10. MOVICOL [Concomitant]
     Indication: CONSTIPATION
     Dosage: 1 UNIT EVERY 1 DAY
     Route: 048
     Dates: start: 20080913
  11. NEFOPAM [Concomitant]
     Indication: PAIN
     Dosage: 30 MG PRN
     Route: 048
  12. OMEPRAZOLE [Concomitant]
     Route: 048
  13. QUININE SULFATE [Concomitant]
     Indication: MUSCLE SPASMS
     Route: 048
  14. RISEDRONATE SODIUM [Concomitant]
     Indication: OSTEOPOROSIS
     Route: 048
  15. SIMVASTATIN [Concomitant]
     Indication: BLOOD CHOLESTEROL INCREASED
     Route: 048
  16. ADCAL D3 [Concomitant]
     Indication: BONE DISORDER
     Dosage: 1 UNIT EVERY 1 DAY
     Route: 048

REACTIONS (1)
  - PARANOIA [None]
